FAERS Safety Report 21109046 (Version 1)
Quarter: 2022Q3

REPORT INFORMATION
  Report Type: Spontaneous
  Country: US (occurrence: US)
  Receive Date: 20220721
  Receipt Date: 20220721
  Transmission Date: 20221027
  Serious: Yes (Life-Threatening)
  Sender: FDA-Public Use
  Company Number: US-BAUSCH-BL-2022-017900

PATIENT
  Age: 12 Year
  Sex: Female
  Weight: 48 kg

DRUGS (16)
  1. MAGNESIUM [Suspect]
     Active Substance: MAGNESIUM
     Indication: Muscle spasms
     Route: 042
  2. MAGNESIUM [Suspect]
     Active Substance: MAGNESIUM
     Dosage: PER HOUR INFUSION
     Route: 042
  3. MAGNESIUM [Suspect]
     Active Substance: MAGNESIUM
     Route: 040
  4. MAGNESIUM [Suspect]
     Active Substance: MAGNESIUM
     Dosage: PER HOUR
     Route: 040
  5. METRONIDAZOLE [Concomitant]
     Active Substance: METRONIDAZOLE
     Indication: Tetanus
     Route: 042
  6. TETANUS IMMUNE GLOBULIN (HUMAN) [Concomitant]
     Active Substance: HUMAN CLOSTRIDIUM TETANI TOXOID IMMUNE GLOBULIN
     Indication: Tetanus
     Route: 030
  7. TETANUS IMMUNE GLOBULIN (HUMAN) [Concomitant]
     Active Substance: HUMAN CLOSTRIDIUM TETANI TOXOID IMMUNE GLOBULIN
     Route: 030
  8. CLINDAMYCIN [Concomitant]
     Active Substance: CLINDAMYCIN
     Indication: Tetanus
     Route: 042
  9. BACLOFEN [Concomitant]
     Active Substance: BACLOFEN
     Indication: Muscle spasms
     Route: 042
  10. FENTANYL [Concomitant]
     Active Substance: FENTANYL
     Indication: Muscle spasms
     Dosage: AS NEEDED
  11. MIDAZOLAM [Concomitant]
     Active Substance: MIDAZOLAM
     Indication: Muscle spasms
     Dosage: AS NEEDED
  12. VECURONIUM [Concomitant]
     Active Substance: VECURONIUM BROMIDE
     Indication: Muscle spasms
     Dosage: AS NEEDED
  13. DOPAMINE [Concomitant]
     Active Substance: DOPAMINE HYDROCHLORIDE
     Indication: Hypotension
     Dosage: LOW DOSE
  14. NOREPINEPHRINE [Concomitant]
     Active Substance: NOREPINEPHRINE
     Indication: Hypotension
     Dosage: LOW DOSES
  15. HYDROCORTISONE [Concomitant]
     Active Substance: HYDROCORTISONE
     Indication: Adrenal insufficiency
     Dosage: STRESS DOSE
  16. HYDROCORTISONE [Concomitant]
     Active Substance: HYDROCORTISONE
     Dosage: TAPER

REACTIONS (1)
  - Hypermagnesaemia [Unknown]
